FAERS Safety Report 8238385-0 (Version None)
Quarter: 2012Q1

REPORT INFORMATION
  Report Type: 
  Country: None (occurrence: None)
  Receive Date: 20120327
  Receipt Date: 20120320
  Transmission Date: 20120608
  Serious: Yes (Other)
  Sender: FDA-Public Use
  Company Number: US-PFIZER INC-2012073688

PATIENT
  Sex: Male

DRUGS (3)
  1. TYLENOL [Concomitant]
     Dosage: UNK
  2. DILANTIN [Suspect]
     Dosage: 100 MG, 2X/DAY
  3. IBUPROFEN [Concomitant]
     Dosage: UNK

REACTIONS (3)
  - CONVULSION [None]
  - IMPAIRED WORK ABILITY [None]
  - HIP ARTHROPLASTY [None]
